FAERS Safety Report 13351287 (Version 2)
Quarter: 2017Q2

REPORT INFORMATION
  Report Type: Other
  Country: US (occurrence: US)
  Receive Date: 20170320
  Receipt Date: 20170525
  Transmission Date: 20170830
  Serious: Yes (Hospitalization, Other)
  Sender: FDA-Public Use
  Company Number: US-ACORDA-ACO_135103_2017

PATIENT
  Age: 71 Year
  Sex: Female

DRUGS (31)
  1. SEREVENT DISKUS [Concomitant]
     Active Substance: SALMETEROL XINAFOATE
     Indication: ASTHMA
     Dosage: 2 PUFFS ONCE A DAY
  2. XOPENEX [Concomitant]
     Active Substance: LEVALBUTEROL HYDROCHLORIDE
     Indication: ASTHMA
     Dosage: 2 PUFFS, PRN
     Route: 065
  3. BACLOFEN. [Concomitant]
     Active Substance: BACLOFEN
     Indication: MUSCLE SPASTICITY
     Dosage: 40 MG, QAM
     Route: 065
  4. FISH OIL [Concomitant]
     Active Substance: FISH OIL
     Indication: DRY EYE
  5. AMPYRA [Suspect]
     Active Substance: DALFAMPRIDINE
     Indication: GAIT DISTURBANCE
     Dosage: 10 MG, QD
     Route: 048
     Dates: start: 201612, end: 20170209
  6. SINGULAIR [Concomitant]
     Active Substance: MONTELUKAST SODIUM
     Indication: ASTHMA
     Dosage: 10 MG, QD
     Route: 065
  7. XOPENEX [Concomitant]
     Active Substance: LEVALBUTEROL HYDROCHLORIDE
     Indication: HYPERSENSITIVITY
  8. VITAMIN D3 [Concomitant]
     Active Substance: CHOLECALCIFEROL
     Indication: OSTEOPOROSIS PROPHYLAXIS
     Dosage: 5000 IU, UNK
     Route: 065
  9. FISH OIL [Concomitant]
     Active Substance: FISH OIL
     Indication: ARTHROPATHY
     Dosage: 1200 MG, QD
     Route: 065
  10. AMPYRA [Suspect]
     Active Substance: DALFAMPRIDINE
     Dosage: 10 MG, QD
     Route: 048
     Dates: start: 20161223, end: 20170209
  11. SEREVENT DISKUS [Concomitant]
     Active Substance: SALMETEROL XINAFOATE
     Indication: HYPERSENSITIVITY
  12. NITROFURANTOIN. [Concomitant]
     Active Substance: NITROFURANTOIN
     Indication: PROPHYLAXIS URINARY TRACT INFECTION
     Dosage: 100 MG, QOD
     Route: 065
  13. AZELASTINE HCL [Concomitant]
     Active Substance: AZELASTINE HYDROCHLORIDE
     Indication: HYPERSENSITIVITY
  14. IPRATROPIUM BROMIDE. [Concomitant]
     Active Substance: IPRATROPIUM BROMIDE
     Indication: RHINORRHOEA
     Dosage: 2 SPRAYS, PRN
     Route: 065
  15. AMANTADINE. [Concomitant]
     Active Substance: AMANTADINE HYDROCHLORIDE
     Indication: ASTHENIA
     Dosage: 200 MG, QAM
     Route: 065
  16. MYRBETRIQ [Concomitant]
     Active Substance: MIRABEGRON
     Indication: BLADDER DISORDER
     Dosage: 25 MG, UNK
     Route: 065
  17. FISH OIL [Concomitant]
     Active Substance: FISH OIL
     Indication: CARDIAC DISORDER
  18. SINGULAIR [Concomitant]
     Active Substance: MONTELUKAST SODIUM
     Indication: HYPERSENSITIVITY
  19. AZELASTINE HCL [Concomitant]
     Active Substance: AZELASTINE HYDROCHLORIDE
     Indication: ASTHMA
     Dosage: 2 SPRAYS, BID
     Route: 045
  20. ZYRTEC [Concomitant]
     Active Substance: CETIRIZINE HYDROCHLORIDE
     Indication: HYPERSENSITIVITY
     Dosage: 10 MG, QD PRN
     Route: 065
  21. ALIGN [Concomitant]
     Active Substance: BIFIDOBACTERIUM LONGUM SUBSP. INFANTIS
     Indication: PROPHYLAXIS
     Dosage: 1 CAPSULE, QD
     Route: 048
  22. KETOPROFEN. [Concomitant]
     Active Substance: KETOPROFEN
     Indication: OSTEOARTHRITIS
     Dosage: UNK, BID
     Route: 065
  23. CRANBERRY. [Concomitant]
     Active Substance: CRANBERRY
     Indication: PROPHYLAXIS URINARY TRACT INFECTION
     Dosage: 4000 MG, UNK
     Route: 065
  24. RESTASIS [Concomitant]
     Active Substance: CYCLOSPORINE
     Indication: DRY EYE
     Dosage: 1 GTT, IN EACH EYE BID
     Route: 047
  25. XARELTO [Concomitant]
     Active Substance: RIVAROXABAN
     Indication: ANTICOAGULANT THERAPY
     Dosage: 20 MG, QD
     Route: 065
  26. UROXATRAL [Concomitant]
     Active Substance: ALFUZOSIN HYDROCHLORIDE
     Indication: URINARY RETENTION
     Dosage: 40 MG, QD
     Route: 065
  27. CITRACAL + D [Concomitant]
     Active Substance: CALCIUM CITRATE\VITAMIN D
     Indication: OSTEOPOROSIS PROPHYLAXIS
     Dosage: 630 MG CALCIUM/500 IU D QD
     Route: 065
  28. AMPYRA [Suspect]
     Active Substance: DALFAMPRIDINE
     Indication: MULTIPLE SCLEROSIS
     Dosage: 10 MG, Q 12 HRS
     Route: 048
     Dates: start: 20150915
  29. DENOSUMAB [Concomitant]
     Active Substance: DENOSUMAB
     Indication: OSTEOPOROSIS PROPHYLAXIS
     Dosage: 2 INFUSIONS TWICE A YEAR
     Route: 065
  30. TECFIDERA [Concomitant]
     Active Substance: DIMETHYL FUMARATE
     Indication: MULTIPLE SCLEROSIS
     Dosage: 560 MG, BID
     Route: 065
  31. BACLOFEN. [Concomitant]
     Active Substance: BACLOFEN
     Dosage: 60 MG, HS
     Route: 065

REACTIONS (6)
  - Incoherent [Recovered/Resolved]
  - Loss of consciousness [Recovered/Resolved]
  - Epilepsy [Recovered/Resolved]
  - Loss of consciousness [Recovered/Resolved]
  - Arrhythmia supraventricular [Unknown]
  - Tachycardia [Unknown]

NARRATIVE: CASE EVENT DATE: 201612
